FAERS Safety Report 5032065-0 (Version None)
Quarter: 2006Q2

REPORT INFORMATION
  Report Type: 
  Country: None (occurrence: None)
  Receive Date: 20060619
  Receipt Date: 20060609
  Transmission Date: 20061013
  Serious: Yes (Other)
  Sender: FDA-Public Use
  Company Number: CHPA2006US05682

PATIENT
  Age: 3 Year
  Sex: Male
  Weight: 15.4 kg

DRUGS (1)
  1. TRIAMINIC LIQUID FORMULATION UNKNOWN (NCH) (UNKNOWN) SYRUP [Suspect]
     Indication: PHARYNGOLARYNGEAL PAIN
     Dosage: 1 TSP, ONCE/SINGLE, ORAL
     Route: 048
     Dates: start: 20060607, end: 20060607

REACTIONS (3)
  - CONVULSION [None]
  - PYREXIA [None]
  - VIRAL INFECTION [None]
